FAERS Safety Report 6394669-2 (Version None)
Quarter: 2009Q4

REPORT INFORMATION
  Report Type: 
  Country: None (occurrence: None)
  Receive Date: 20091009
  Receipt Date: 20091006
  Transmission Date: 20100525
  Serious: Yes (Death)
  Sender: FDA-Public Use
  Company Number: RS-JNJFOC-20091002631

PATIENT
  Sex: Male

DRUGS (2)
  1. RISPOLEPT CONSTA [Suspect]
     Indication: SCHIZOID PERSONALITY DISORDER
     Route: 065
  2. RISPOLEPT [Suspect]
     Indication: SCHIZOID PERSONALITY DISORDER
     Route: 048

REACTIONS (2)
  - COMPLETED SUICIDE [None]
  - DISEASE PROGRESSION [None]
